FAERS Safety Report 8696420 (Version 2)
Quarter: 2012Q4

REPORT INFORMATION
  Report Type: 
  Country: CO (occurrence: CR)
  Receive Date: 20120801
  Receipt Date: 20121023
  Transmission Date: 20130627
  Serious: Yes (Congenital Anomaly)
  Sender: FDA-Public Use
  Company Number: PHHY2012CR064811

PATIENT
  Sex: Female

DRUGS (2)
  1. FORADIL [Suspect]
     Dosage: Maternal dose
     Route: 064
  2. MIFLONIDE [Suspect]
     Dosage: Maternal dose:
     Route: 064

REACTIONS (4)
  - Foetal growth restriction [Unknown]
  - Placental disorder [Unknown]
  - Oligohydramnios [Unknown]
  - Foetal exposure timing unspecified [Unknown]
